FAERS Safety Report 6267365-X (Version None)
Quarter: 2009Q3

REPORT INFORMATION
  Report Type: 
  Country: None (occurrence: None)
  Receive Date: 20090714
  Receipt Date: 20090713
  Transmission Date: 20100115
  Serious: Yes (Hospitalization)
  Sender: FDA-Public Use
  Company Number: D0061881A

PATIENT
  Sex: Male
  Weight: 85 kg

DRUGS (5)
  1. AVANDIA [Suspect]
     Route: 048
     Dates: start: 20090428, end: 20090602
  2. ASPIRIN [Concomitant]
     Route: 048
     Dates: start: 19990101
  3. RAMIPRIL [Concomitant]
     Route: 048
     Dates: start: 19990101
  4. ACTRAPHANE [Concomitant]
     Route: 065
     Dates: start: 19990101
  5. METFORMIN HCL [Concomitant]
     Route: 048
     Dates: start: 19990101

REACTIONS (3)
  - GAIT DISTURBANCE [None]
  - MUSCULOSKELETAL DISORDER [None]
  - PARESIS [None]
